FAERS Safety Report 23751177 (Version 1)
Quarter: 2024Q2

REPORT INFORMATION
  Report Type: Spontaneous
  Country: US (occurrence: US)
  Receive Date: 20240417
  Receipt Date: 20240417
  Transmission Date: 20240716
  Serious: Yes (Other)
  Sender: FDA-Public Use
  Company Number: US-SA-SAC20240415000797

PATIENT
  Sex: Female

DRUGS (3)
  1. DUPIXENT [Suspect]
     Active Substance: DUPILUMAB
     Indication: Asthma
     Dosage: 200 MG, QOW
     Route: 058
     Dates: start: 202209
  2. BOTOX [Concomitant]
     Active Substance: ONABOTULINUMTOXINA
  3. METHENAMINE HIPPURATE [Concomitant]
     Active Substance: METHENAMINE HIPPURATE

REACTIONS (1)
  - Breast cancer [Unknown]
